FAERS Safety Report 8118243 (Version 3)
Quarter: 2012Q4

REPORT INFORMATION
  Report Type: 
  Country: US (occurrence: US)
  Receive Date: 20110902
  Receipt Date: 20121001
  Transmission Date: 20130627
  Serious: Yes (Hospitalization)
  Sender: FDA-Public Use
  Company Number: US-US-EMD SERONO, INC.-7079081

PATIENT
  Sex: Female
  Weight: 52 kg

DRUGS (2)
  1. REBIF [Suspect]
     Indication: MULTIPLE SCLEROSIS
     Route: 058
     Dates: start: 20050927
  2. DIAZEPAM [Concomitant]
     Indication: MUSCLE SPASTICITY

REACTIONS (1)
  - Arthralgia [Recovered/Resolved]
